FAERS Safety Report 4779970-8 (Version None)
Quarter: 2005Q3

REPORT INFORMATION
  Report Type: 
  Country: None (occurrence: None)
  Receive Date: 20050927
  Receipt Date: 20050919
  Transmission Date: 20060218
  Serious: Yes (Hospitalization)
  Sender: FDA-Public Use
  Company Number: AU-GLAXOSMITHKLINE-B0394859A

PATIENT
  Sex: Female

DRUGS (1)
  1. ZYBAN [Suspect]
     Indication: DRUG USE FOR UNKNOWN INDICATION
     Dosage: 1TAB PER DAY
     Route: 048

REACTIONS (5)
  - AGGRESSION [None]
  - DYSPNOEA [None]
  - HALLUCINATION [None]
  - MOOD SWINGS [None]
  - PSYCHOMOTOR HYPERACTIVITY [None]
